FAERS Safety Report 8746421 (Version 2)
Quarter: 2018Q4

REPORT INFORMATION
  Report Type: Spontaneous
  Country: FR (occurrence: FR)
  Receive Date: 20120827
  Receipt Date: 20181029
  Transmission Date: 20190205
  Serious: Yes (Hospitalization, Other)
  Sender: FDA-Public Use
  Company Number: FR-ASTRAZENECA-2012SE60217

PATIENT
  Age: 87 Year
  Sex: Female
  Weight: 57 kg

DRUGS (7)
  1. PREVISCAN (FLUINDIONE) [Concomitant]
     Active Substance: FLUINDIONE
  2. ATACAND [Concomitant]
     Active Substance: CANDESARTAN CILEXETIL
  3. ALDACTONE [Suspect]
     Active Substance: SPIRONOLACTONE
     Route: 048
     Dates: end: 20111202
  4. BRICANYL [Concomitant]
     Active Substance: TERBUTALINE SULFATE
  5. INEXIUM [Suspect]
     Active Substance: ESOMEPRAZOLE
     Route: 048
     Dates: end: 20111205
  6. ATROVENT [Concomitant]
     Active Substance: IPRATROPIUM BROMIDE
  7. LASILIX [Suspect]
     Active Substance: FUROSEMIDE
     Route: 048
     Dates: end: 20111202

REACTIONS (3)
  - Hyponatraemia [Recovered/Resolved]
  - Renal failure [Recovered/Resolved]
  - General physical health deterioration [Unknown]

NARRATIVE: CASE EVENT DATE: 20111201
